FAERS Safety Report 11147794 (Version 1)
Quarter: 2015Q2

REPORT INFORMATION
  Report Type: Report from Study
  Country: US (occurrence: US)
  Receive Date: 20150529
  Receipt Date: 20150529
  Transmission Date: 20150821
  Serious: Yes (Hospitalization)
  Sender: FDA-Public Use
  Company Number: US-CELGENE-USA-2015053600

PATIENT
  Age: 26 Year
  Sex: Male
  Weight: 82 kg

DRUGS (1)
  1. CC-10004 [Suspect]
     Active Substance: APREMILAST
     Indication: DRUG LEVEL
     Dosage: 75 MILLIGRAM
     Route: 048
     Dates: start: 20150512, end: 20150513

REACTIONS (1)
  - Pancreatitis acute [Recovered/Resolved]

NARRATIVE: CASE EVENT DATE: 20150513
